FAERS Safety Report 22811464 (Version 6)
Quarter: 2024Q1

REPORT INFORMATION
  Report Type: Spontaneous
  Country: JP (occurrence: None)
  Receive Date: 20230810
  Receipt Date: 20240311
  Transmission Date: 20240410
  Serious: Yes (Death, Other)
  Sender: FDA-Public Use
  Company Number: 2023A181229

PATIENT
  Age: 70 Year
  Sex: Female
  Weight: 50 kg

DRUGS (8)
  1. IMFINZI [Suspect]
     Active Substance: DURVALUMAB
     Indication: Bile duct cancer
     Route: 041
     Dates: start: 20230217, end: 20230602
  2. GEMZAR [Suspect]
     Active Substance: GEMCITABINE HYDROCHLORIDE
     Indication: Bile duct cancer
     Dosage: DOSE UNKNOWN
     Dates: start: 20211018, end: 20230609
  3. CISPLATIN [Suspect]
     Active Substance: CISPLATIN
     Indication: Bile duct cancer
     Dosage: DOSE UNKNOWN
     Dates: start: 20230217, end: 20230609
  4. CISPLATIN [Suspect]
     Active Substance: CISPLATIN
     Indication: Bile duct cancer
     Dosage: DOSE UNKNOWN
     Dates: start: 20211018, end: 20220314
  5. TS-1 [Suspect]
     Active Substance: GIMERACIL\OTERACIL POTASSIUM\TEGAFUR
     Indication: Bile duct cancer
     Dosage: UNKNOWN80.0MG UNKNOWN
     Dates: start: 20211018, end: 20221229
  6. LANSOPRAZOLE [Concomitant]
     Active Substance: LANSOPRAZOLE
     Indication: Ulcer
     Dosage: AFTER EVENING MEAL
     Route: 048
  7. APREPITANT [Concomitant]
     Active Substance: APREPITANT
     Dosage: AFTER BREAKFAST
     Route: 048
  8. ZINC [Concomitant]
     Active Substance: PYRITHIONE ZINC\ZINC\ZINC CHLORIDE
     Indication: Blood zinc decreased
     Dosage: AFTER BREAKFAST AND EVENING MEAL
     Route: 048

REACTIONS (7)
  - Sudden death [Fatal]
  - White blood cell count decreased [Not Recovered/Not Resolved]
  - Cholangitis [Recovered/Resolved]
  - Metastases to peritoneum [Unknown]
  - Nausea [Recovering/Resolving]
  - Decreased appetite [Recovering/Resolving]
  - Weight decreased [Unknown]

NARRATIVE: CASE EVENT DATE: 20211227
